FAERS Safety Report 13256732 (Version 1)
Quarter: 2017Q1

REPORT INFORMATION
  Report Type: Spontaneous
  Country: US (occurrence: US)
  Receive Date: 20170221
  Receipt Date: 20170221
  Transmission Date: 20170428
  Serious: No
  Sender: FDA-Public Use
  Company Number: US-ASTRAZENECA-2017SE01104

PATIENT
  Sex: Female

DRUGS (3)
  1. EXEMESTANE. [Concomitant]
     Active Substance: EXEMESTANE
  2. DELSYM [Concomitant]
     Active Substance: DEXTROMETHORPHAN
  3. ARIMIDEX [Suspect]
     Active Substance: ANASTROZOLE
     Route: 048
     Dates: start: 2015

REACTIONS (6)
  - Alopecia [Unknown]
  - Amnesia [Unknown]
  - Arthralgia [Unknown]
  - Adverse event [Unknown]
  - Diarrhoea [Unknown]
  - Nausea [Unknown]
